FAERS Safety Report 21857899 (Version 1)
Quarter: 2023Q1

REPORT INFORMATION
  Report Type: Spontaneous
  Country: US (occurrence: US)
  Receive Date: 20230113
  Receipt Date: 20230113
  Transmission Date: 20230417
  Serious: Yes (Hospitalization, Other)
  Sender: FDA-Public Use
  Company Number: US-ABBVIE-4234266

PATIENT
  Sex: Female

DRUGS (1)
  1. RINVOQ [Suspect]
     Active Substance: UPADACITINIB
     Indication: Product used for unknown indication
     Route: 048

REACTIONS (7)
  - Stoma site haemorrhage [Unknown]
  - Thrombosis [Unknown]
  - Gastrointestinal perforation [Unknown]
  - Intra-abdominal haematoma [Unknown]
  - Gastric haemorrhage [Unknown]
  - Transfusion [Unknown]
  - Intestinal ischaemia [Unknown]
